FAERS Safety Report 12556440 (Version 1)
Quarter: 2016Q3

REPORT INFORMATION
  Report Type: Spontaneous
  Country: US (occurrence: None)
  Receive Date: 20160713
  Receipt Date: 20160713
  Transmission Date: 20161109
  Serious: Yes (Other)
  Sender: FDA-Public Use
  Company Number: None

PATIENT
  Age: 72 Year
  Sex: Female
  Weight: 59.88 kg

DRUGS (3)
  1. PROMETHAZINE/DEXTROMETHORPHAN [Suspect]
     Active Substance: DEXTROMETHORPHAN\PROMETHAZINE
     Indication: INFECTION
     Dosage: 1 TEASPOON EVERY 4 TO 6 HOURS BY MOUTH
     Route: 048
     Dates: start: 19160203, end: 19160703
  2. PROMETHAZINE/DEXTROMETHORPHAN [Suspect]
     Active Substance: DEXTROMETHORPHAN\PROMETHAZINE
     Indication: COUGH
     Dosage: 1 TEASPOON EVERY 4 TO 6 HOURS BY MOUTH
     Route: 048
     Dates: start: 19160203, end: 19160703
  3. PROMETHAZINE/DEXTROMETHORPHAN [Suspect]
     Active Substance: DEXTROMETHORPHAN\PROMETHAZINE
     Indication: EAR PAIN
     Dosage: 1 TEASPOON EVERY 4 TO 6 HOURS BY MOUTH
     Route: 048
     Dates: start: 19160203, end: 19160703

REACTIONS (3)
  - Vision blurred [None]
  - Middle insomnia [None]
  - Headache [None]
